FAERS Safety Report 7905144-5 (Version None)
Quarter: 2011Q4

REPORT INFORMATION
  Report Type: 
  Country: None (occurrence: None)
  Receive Date: 20111109
  Receipt Date: 20111101
  Transmission Date: 20120403
  Serious: Yes (Other)
  Sender: FDA-Public Use
  Company Number: US-US-EMD SERONO, INC.-7093430

PATIENT
  Sex: Female
  Weight: 84 kg

DRUGS (2)
  1. REBIF [Suspect]
     Indication: MULTIPLE SCLEROSIS
     Route: 058
     Dates: start: 20081117
  2. CELEBREX [Concomitant]
     Indication: ARTHRITIS
     Dates: start: 19670101

REACTIONS (2)
  - PERIARTHRITIS [None]
  - ARTHRITIS [None]
